FAERS Safety Report 9506556 (Version 1)
Quarter: 2013Q3

REPORT INFORMATION
  Report Type: Spontaneous
  Country: IT (occurrence: None)
  Receive Date: 20130904
  Receipt Date: 20130904
  Transmission Date: 20140515
  Serious: Yes (Other)
  Sender: FDA-Public Use
  Company Number: USA/ITL/13/0034349

PATIENT
  Age: 28 Year
  Sex: Male

DRUGS (2)
  1. LEVOFLOXACIN [Suspect]
     Indication: PRODUCT USED FOR UNKNOWN INDICATION
     Route: 048
  2. PIPERACILLIN/TAZOBACTAM [Suspect]
     Indication: PRODUCT USED FOR UNKNOWN INDICATION
     Dosage: UNKNOWN, INTRAVENOUS (NOT OTHERWISE SPECIFIED)
     Route: 042

REACTIONS (5)
  - Kounis syndrome [None]
  - Urticaria [None]
  - Pruritus [None]
  - Angioedema [None]
  - Stridor [None]
